FAERS Safety Report 4710273-3 (Version None)
Quarter: 2005Q3

REPORT INFORMATION
  Report Type: 
  Country: None (occurrence: None)
  Receive Date: 20050711
  Receipt Date: 20050519
  Transmission Date: 20060218
  Serious: Yes (Hospitalization, Other)
  Sender: FDA-Public Use
  Company Number: NSADSS2001035417

PATIENT
  Age: 51 Year
  Sex: Female

DRUGS (8)
  1. REMICADE [Suspect]
     Route: 041
     Dates: start: 20010509
  2. REMICADE [Suspect]
     Route: 041
     Dates: start: 20010509
  3. REMICADE [Suspect]
     Indication: RHEUMATOID ARTHRITIS
     Route: 041
     Dates: start: 20010509
  4. METHOTREXATE [Suspect]
     Dates: start: 20010523
  5. METHOTREXATE [Suspect]
     Indication: RHEUMATOID ARTHRITIS
     Dates: start: 20010523
  6. METHYLPREDNISOLONE 16MG TAB [Suspect]
     Indication: RHEUMATOID ARTHRITIS
  7. INDOMETHACIN [Concomitant]
  8. DICLOFENAC SODIUM [Concomitant]

REACTIONS (17)
  - ANAEMIA [None]
  - APHTHOUS STOMATITIS [None]
  - ASTHENIA [None]
  - BRUCELLOSIS [None]
  - DIARRHOEA [None]
  - ECCHYMOSIS [None]
  - HEPATIC ENZYME INCREASED [None]
  - HYPERBILIRUBINAEMIA [None]
  - HYPERHIDROSIS [None]
  - JAUNDICE [None]
  - NAUSEA [None]
  - OEDEMA PERIPHERAL [None]
  - PALLOR [None]
  - SEPSIS [None]
  - THERAPEUTIC RESPONSE DECREASED [None]
  - THROMBOCYTOPENIA [None]
  - VOMITING [None]
